FAERS Safety Report 18757149 (Version 2)
Quarter: 2021Q3

REPORT INFORMATION
  Report Type: Spontaneous
  Country: US (occurrence: US)
  Receive Date: 20210119
  Receipt Date: 20210716
  Transmission Date: 20211014
  Serious: Yes (Disabling, Congenital Anomaly, Other)
  Sender: FDA-Public Use
  Company Number: US-PURDUE-USA-2020-0198877

PATIENT
  Sex: Female

DRUGS (2)
  1. OXYCONTIN [Suspect]
     Active Substance: OXYCODONE HYDROCHLORIDE
     Indication: SURGERY
  2. OXYCONTIN [Suspect]
     Active Substance: OXYCODONE HYDROCHLORIDE
     Indication: PAIN
     Dosage: 10 MG
     Route: 048
     Dates: start: 2000

REACTIONS (14)
  - Spina bifida [Unknown]
  - Congenital anomaly [Unknown]
  - Obstructive airways disorder [Recovered/Resolved]
  - Gait disturbance [Recovered/Resolved]
  - Disability [Unknown]
  - Gastric dilatation [Unknown]
  - Rash [Recovered/Resolved]
  - Furuncle [Recovered/Resolved]
  - Illness [Recovered/Resolved]
  - Developmental delay [Unknown]
  - Spinal operation [Unknown]
  - Disorientation [Recovered/Resolved]
  - Nausea [Recovered/Resolved]
  - Dyspnoea [Recovered/Resolved]

NARRATIVE: CASE EVENT DATE: 2007
